FAERS Safety Report 20019778 (Version 5)
Quarter: 2022Q4

REPORT INFORMATION
  Report Type: Spontaneous
  Country: US (occurrence: US)
  Receive Date: 20211101
  Receipt Date: 20221104
  Transmission Date: 20230113
  Serious: Yes (Other)
  Sender: FDA-Public Use
  Company Number: US-PFIZER INC-202101380483

PATIENT
  Age: 48 Year
  Sex: Female

DRUGS (1)
  1. XELJANZ XR [Suspect]
     Active Substance: TOFACITINIB CITRATE
     Indication: Rheumatoid arthritis
     Dosage: 11 MG, DAILY
     Route: 048
     Dates: start: 20210908

REACTIONS (9)
  - Large intestine polyp [Unknown]
  - Arthritis [Unknown]
  - Depressed mood [Unknown]
  - Pain [Unknown]
  - Back pain [Unknown]
  - Pain in extremity [Unknown]
  - Blood glucose increased [Unknown]
  - Hypertension [Unknown]
  - Product dose omission in error [Unknown]

NARRATIVE: CASE EVENT DATE: 20211201
